FAERS Safety Report 22589985 (Version 1)
Quarter: 2023Q2

REPORT INFORMATION
  Report Type: Spontaneous
  Country: GB (occurrence: None)
  Receive Date: 20230612
  Receipt Date: 20230612
  Transmission Date: 20230722
  Serious: Yes (Hospitalization, Other)
  Sender: FDA-Public Use
  Company Number: GB-MHRA-MED-202305261536056470-BPVNT

PATIENT
  Age: 44 Year
  Sex: Female
  Weight: 83 kg

DRUGS (13)
  1. ATRACURIUM [Suspect]
     Active Substance: ATRACURIUM
     Indication: Neuromuscular blockade
     Dosage: UNKNOWN
     Route: 065
     Dates: start: 20230525, end: 20230525
  2. AMOXICILLIN\CLAVULANATE POTASSIUM [Concomitant]
     Active Substance: AMOXICILLIN\CLAVULANATE POTASSIUM
     Indication: Surgery
     Dosage: UNKNOWN
     Route: 042
     Dates: start: 20230525, end: 20230525
  3. DEXAMETHASONE [Concomitant]
     Active Substance: DEXAMETHASONE
     Indication: Surgery
     Dosage: UNKNOWN
     Route: 042
     Dates: start: 20230525, end: 20230525
  4. EPHEDRINE [Concomitant]
     Active Substance: EPHEDRINE
     Indication: Adverse event
     Dosage: UNKNOWN
     Route: 042
     Dates: start: 20230525, end: 20230525
  5. GLYCOPYRROLATE\NEOSTIGMINE [Concomitant]
     Active Substance: GLYCOPYRROLATE\NEOSTIGMINE
     Indication: Neuromuscular blockade reversal
     Dosage: UNKNOWN
     Route: 065
     Dates: start: 20230525, end: 20230525
  6. HYDROCORTISONE [Concomitant]
     Active Substance: HYDROCORTISONE
     Indication: Adverse drug reaction
     Dosage: UNKNOWN
     Route: 065
     Dates: start: 20230525, end: 20230525
  7. METARAMINOL [Concomitant]
     Active Substance: METARAMINOL
     Indication: Adverse event
     Dosage: UNKNOWN
     Route: 042
     Dates: start: 20230525, end: 20230525
  8. ONDANSETRON [Concomitant]
     Active Substance: ONDANSETRON
     Indication: Surgery
     Dosage: UNKNOWN
     Route: 042
     Dates: start: 20230525, end: 20230525
  9. ACETAMINOPHEN [Concomitant]
     Active Substance: ACETAMINOPHEN
     Indication: Surgery
     Dosage: UNKNOWN
     Route: 042
     Dates: start: 20230525, end: 20230525
  10. PARECOXIB [Concomitant]
     Active Substance: PARECOXIB
     Indication: Surgery
     Dosage: UNKNOWN
     Route: 042
     Dates: start: 20230525, end: 20230525
  11. PROPOFOL [Concomitant]
     Active Substance: PROPOFOL
     Indication: Adverse drug reaction
     Dosage: UNKNOWN
     Route: 042
     Dates: start: 20230525, end: 20230525
  12. PROPOFOL [Concomitant]
     Active Substance: PROPOFOL
     Indication: General anaesthesia
  13. REMIFENTANIL [Concomitant]
     Active Substance: REMIFENTANIL
     Indication: Surgery
     Dosage: UNKNOWN
     Route: 042
     Dates: start: 20230525, end: 20230525

REACTIONS (5)
  - Hypoventilation [Recovered/Resolved]
  - Carbon dioxide decreased [Recovered/Resolved]
  - Oxygen saturation decreased [Recovered/Resolved]
  - Hypotension [Recovered/Resolved]
  - Anaphylactic reaction [Recovered/Resolved]

NARRATIVE: CASE EVENT DATE: 20230525
